FAERS Safety Report 5706107-0 (Version None)
Quarter: 2008Q2

REPORT INFORMATION
  Report Type: 
  Country: None (occurrence: None)
  Receive Date: 20080411
  Receipt Date: 20070606
  Transmission Date: 20081010
  Serious: Yes (Hospitalization)
  Sender: FDA-Public Use
  Company Number: 2007RR-13251

PATIENT
  Age: 72 Year
  Sex: Male

DRUGS (5)
  1. SIMVASTATIN [Suspect]
     Dosage: 20 MG, ORAL
     Route: 048
     Dates: end: 20070506
  2. AMLODIPINE [Concomitant]
  3. ASPIRIN [Concomitant]
  4. NABUMETONE [Concomitant]
  5. RAMIPRIL 2.5 MG CAPSULES (RAMIPRIL) UNKNOWN [Concomitant]

REACTIONS (1)
  - BLOOD CREATINE PHOSPHOKINASE INCREASED [None]
